FAERS Safety Report 5510909-3 (Version None)
Quarter: 2007Q4

REPORT INFORMATION
  Report Type: 
  Country: None (occurrence: None)
  Receive Date: 20071107
  Receipt Date: 20071024
  Transmission Date: 20080405
  Serious: No
  Sender: FDA-Public Use
  Company Number: C-07-0024

PATIENT
  Age: 64 Year
  Sex: Male
  Weight: 145 kg

DRUGS (1)
  1. DEXAMETHASONE INTENSOL [Suspect]
     Dates: start: 20070808

REACTIONS (1)
  - ORAL DISCOMFORT [None]
